FAERS Safety Report 15090160 (Version 2)
Quarter: 2018Q2

REPORT INFORMATION
  Report Type: Report from Study
  Country: US (occurrence: US)
  Receive Date: 20180629
  Receipt Date: 20180629
  Transmission Date: 20180711
  Serious: Yes (Hospitalization, Other)
  Sender: FDA-Public Use
  Company Number: US-TEVA-2017-US-831394

PATIENT
  Age: 42 Year
  Sex: Female

DRUGS (17)
  1. CLOZAPINE. [Suspect]
     Active Substance: CLOZAPINE
     Indication: SCHIZOPHRENIA
     Dosage: AT BEDTIME
     Route: 048
  2. TYLENOL [Concomitant]
     Active Substance: ACETAMINOPHEN
  3. DULCOLAX NOS [Concomitant]
     Active Substance: BISACODYL OR DOCUSATE SODIUM
  4. NEURONTIN [Concomitant]
     Active Substance: GABAPENTIN
  5. ATIVAN [Concomitant]
     Active Substance: LORAZEPAM
  6. MIRALAX [Concomitant]
     Active Substance: POLYETHYLENE GLYCOL 3350
  7. REFRESH CLASSIC LUCRICANT EYE DROPS [Concomitant]
  8. NICORETTE [Concomitant]
     Active Substance: NICOTINE
  9. OXYCODONE [Concomitant]
     Active Substance: OXYCODONE
  10. MAALOX ANTACID [Concomitant]
     Active Substance: ALUMINUM HYDROXIDE\DIMETHICONE\MAGNESIUM HYDROXIDE
  11. SUBOXONE [Concomitant]
     Active Substance: BUPRENORPHINE HYDROCHLORIDE\NALOXONE HYDROCHLORIDE
  12. MILK OF MAGNESIA [Concomitant]
     Active Substance: MAGNESIUM HYDROXIDE
  13. COMPAZINE [Concomitant]
     Active Substance: PROCHLORPERAZINE MALEATE
  14. PERI-COLACE [Concomitant]
     Active Substance: CASANTHRANOL\DOCUSATE SODIUM
  15. DECADRON [Concomitant]
     Active Substance: DEXAMETHASONE
  16. ADVIL [Concomitant]
     Active Substance: IBUPROFEN
  17. AMBIEN [Concomitant]
     Active Substance: ZOLPIDEM TARTRATE

REACTIONS (6)
  - Cervix cancer metastatic [Not Recovered/Not Resolved]
  - Malaise [Not Recovered/Not Resolved]
  - Granulocytopenia [Unknown]
  - Psychotic disorder [Unknown]
  - Ovarian cancer [Unknown]
  - Limb injury [Unknown]

NARRATIVE: CASE EVENT DATE: 20180618
